FAERS Safety Report 8543941-6 (Version None)
Quarter: 2012Q3

REPORT INFORMATION
  Report Type: 
  Country: None (occurrence: None)
  Receive Date: 20120727
  Receipt Date: 20120723
  Transmission Date: 20120928
  Serious: Yes (Death)
  Sender: FDA-Public Use
  Company Number: AU-PFIZER INC-2012149988

PATIENT
  Age: 52 Year
  Sex: Female

DRUGS (4)
  1. PRADAXA [Concomitant]
     Indication: ATRIAL FIBRILLATION
     Dosage: 110 MG, 2X/DAY
     Route: 048
  2. DIGOXIN [Concomitant]
     Indication: ATRIAL FIBRILLATION
     Dosage: 125 UG, 1X/DAY
     Route: 048
  3. REVATIO [Suspect]
     Indication: PULMONARY ARTERIAL PRESSURE INCREASED
  4. REVATIO [Suspect]
     Indication: CARDIAC OPERATION
     Dosage: 20 MG, 3X/DAY
     Route: 048

REACTIONS (2)
  - CARDIAC DISORDER [None]
  - FLUID OVERLOAD [None]
